FAERS Safety Report 18592662 (Version 1)
Quarter: 2020Q4

REPORT INFORMATION
  Report Type: Spontaneous
  Country: CA (occurrence: CA)
  Receive Date: 20201208
  Receipt Date: 20201208
  Transmission Date: 20210114
  Serious: Yes (Other)
  Sender: FDA-Public Use
  Company Number: CA-TOLMAR, INC.-20CA024219

PATIENT
  Age: 9 Year
  Sex: Female

DRUGS (11)
  1. DDAVP [Suspect]
     Active Substance: DESMOPRESSIN ACETATE
     Dosage: 25 MICROGRAM, BID
     Route: 065
  2. HYDROCORTISONE. [Suspect]
     Active Substance: HYDROCORTISONE
     Indication: PRODUCT USED FOR UNKNOWN INDICATION
     Route: 065
  3. TRAMETINIB [Suspect]
     Active Substance: TRAMETINIB
     Indication: OPTIC GLIOMA
     Dosage: 1.25 MG, QD
     Route: 065
  4. DDAVP [Suspect]
     Active Substance: DESMOPRESSIN ACETATE
     Dosage: 25 MICROGRAM, BID
     Route: 065
  5. DDAVP [Suspect]
     Active Substance: DESMOPRESSIN ACETATE
     Indication: PRODUCT USED FOR UNKNOWN INDICATION
     Dosage: 150 MICROGRAM, BID
     Route: 065
  6. DDAVP [Suspect]
     Active Substance: DESMOPRESSIN ACETATE
     Dosage: 25 MICROGRAM, QD
     Route: 065
  7. DDAVP [Suspect]
     Active Substance: DESMOPRESSIN ACETATE
     Dosage: 200/150 MCG
     Route: 065
  8. LEVOTHYROXINE. [Suspect]
     Active Substance: LEVOTHYROXINE
     Indication: PRODUCT USED FOR UNKNOWN INDICATION
     Route: 065
  9. DDAVP [Suspect]
     Active Substance: DESMOPRESSIN ACETATE
     Dosage: 125/50 MCG
  10. FENSOLVI [Suspect]
     Active Substance: LEUPROLIDE ACETATE
     Indication: PRECOCIOUS PUBERTY
     Dosage: UNK
     Route: 065
  11. DDAVP [Suspect]
     Active Substance: DESMOPRESSIN ACETATE
     Dosage: 50 MICROGRAM, BID
     Route: 065

REACTIONS (1)
  - Toxicity to various agents [Recovered/Resolved]
